FAERS Safety Report 14473053 (Version 3)
Quarter: 2018Q1

REPORT INFORMATION
  Report Type: Spontaneous
  Country: US (occurrence: US)
  Receive Date: 20180201
  Receipt Date: 20180314
  Transmission Date: 20180509
  Serious: Yes (Other)
  Sender: FDA-Public Use
  Company Number: US-LEO PHARMA-307096

PATIENT
  Age: 57 Year
  Sex: Female

DRUGS (2)
  1. PICATO [Suspect]
     Active Substance: INGENOL MEBUTATE
     Route: 061
     Dates: start: 20180119
  2. PICATO [Suspect]
     Active Substance: INGENOL MEBUTATE
     Indication: ACTINIC KERATOSIS
     Route: 061
     Dates: start: 20180119

REACTIONS (20)
  - Application site pain [Recovered/Resolved]
  - Oral discomfort [Recovered/Resolved]
  - Urticaria [Recovered/Resolved]
  - Lip discolouration [Recovered/Resolved]
  - Lip erythema [Recovered/Resolved]
  - Lip swelling [Recovered/Resolved]
  - Lip pain [Recovered/Resolved]
  - Hyperhidrosis [Recovered/Resolved]
  - Application site scab [Recovering/Resolving]
  - Nausea [Recovered/Resolved]
  - Headache [Recovered/Resolved]
  - Pyrexia [Recovered/Resolved]
  - Hypersensitivity [Recovering/Resolving]
  - Application site ulcer [Recovering/Resolving]
  - Burning sensation [Recovered/Resolved]
  - Application site rash [Recovered/Resolved]
  - Chapped lips [Not Recovered/Not Resolved]
  - Lip blister [Recovered/Resolved]
  - Palpitations [Recovered/Resolved]
  - Application site erythema [Recovering/Resolving]

NARRATIVE: CASE EVENT DATE: 20180119
